FAERS Safety Report 9476456 (Version 2)
Quarter: 2013Q3

REPORT INFORMATION
  Report Type: Spontaneous
  Country: US (occurrence: US)
  Receive Date: 20130826
  Receipt Date: 20130903
  Transmission Date: 20140515
  Serious: Yes (Death, Hospitalization, Other)
  Sender: FDA-Public Use
  Company Number: US-LUNDBECK-DKLU1093112

PATIENT
  Age: 3 Year
  Sex: Female
  Weight: 12 kg

DRUGS (10)
  1. SABRIL (FOR ORAL SOLUTION) [Suspect]
     Indication: INFANTILE SPASMS
     Route: 048
     Dates: start: 201003
  2. SABRIL (FOR ORAL SOLUTION) [Suspect]
     Route: 048
     Dates: start: 201003
  3. SABRIL (FOR ORAL SOLUTION) [Suspect]
     Route: 048
  4. DESMOPRESSIN [Concomitant]
     Indication: PRODUCT USED FOR UNKNOWN INDICATION
     Route: 050
  5. DIASTAT ACCUDIAL [Concomitant]
     Indication: GRAND MAL CONVULSION
     Route: 050
  6. HYDROCORTISONE [Concomitant]
     Indication: PRODUCT USED FOR UNKNOWN INDICATION
     Route: 048
  7. HYDROCORTISONE [Concomitant]
     Route: 048
  8. HYDROCORTISONE SODIUM SUCCINATE [Concomitant]
     Indication: EMERGENCY CARE
     Route: 050
  9. LEVETIRACETAM [Concomitant]
     Indication: PRODUCT USED FOR UNKNOWN INDICATION
     Route: 048
  10. POLYETHYLENE GLYCOL 3350 [Concomitant]
     Indication: CONSTIPATION
     Dosage: 0.5 TO 1 CAP
     Route: 048

REACTIONS (7)
  - Sudden unexplained death in epilepsy [Fatal]
  - Grand mal convulsion [Recovered/Resolved]
  - Infection [Unknown]
  - Endocrine disorder [Unknown]
  - Metabolic disorder [Unknown]
  - Infantile spasms [Recovered/Resolved]
  - Convulsion [Recovered/Resolved]
